FAERS Safety Report 9125291 (Version 1)
Quarter: 2013Q1

REPORT INFORMATION
  Report Type: Spontaneous
  Country: US (occurrence: US)
  Receive Date: 20130227
  Receipt Date: 20130227
  Transmission Date: 20140127
  Serious: Yes (Hospitalization)
  Sender: FDA-Public Use
  Company Number: US-B.I. PHARMACEUTICALS,INC./RIDGEFIELD-2013-BI-04523BP

PATIENT
  Age: 84 Year
  Sex: Female

DRUGS (2)
  1. PRADAXA [Suspect]
     Indication: ATRIAL FIBRILLATION
     Dosage: 300 MG
     Route: 048
     Dates: end: 201302
  2. LOVENOX [Suspect]
     Dosage: 160 MG
     Route: 058
     Dates: start: 201302

REACTIONS (6)
  - Hip fracture [Not Recovered/Not Resolved]
  - Postoperative ileus [Not Recovered/Not Resolved]
  - Haematoma [Not Recovered/Not Resolved]
  - Nausea [Unknown]
  - Anaemia [Unknown]
  - Arthralgia [Unknown]
